FAERS Safety Report 6919678-3 (Version None)
Quarter: 2010Q3

REPORT INFORMATION
  Report Type: 
  Country: None (occurrence: None)
  Receive Date: 20100811
  Receipt Date: 20100806
  Transmission Date: 20110219
  Serious: Yes (Death)
  Sender: FDA-Public Use
  Company Number: DE-ROCHE-719922

PATIENT
  Sex: Female

DRUGS (7)
  1. CAPECITABINE [Suspect]
     Dosage: NORMALLY CYCLE OF 14 DAYS WITH 1 WEEK WITHOUT CAPECITABINE.
     Route: 048
     Dates: start: 20060927, end: 20061122
  2. CAPECITABINE [Suspect]
     Route: 048
     Dates: start: 20061213, end: 20061227
  3. CAPECITABINE [Suspect]
     Route: 048
     Dates: start: 20070103, end: 20070117
  4. CLEXANE [Concomitant]
     Indication: THROMBOSIS
     Dosage: NO UNITS PROVIDED FOR ENOXAPARIN DOSE.
     Dates: start: 20061122
  5. METOPROLOL SUCCINATE [Concomitant]
     Indication: HYPERTENSION
     Dosage: FREQUENCY: 2XDAILY
  6. NOVAMIN [Concomitant]
     Dosage: FREQUENCY: 3 X DAILY
  7. DELIX PLUS [Concomitant]
     Dosage: FREQUENCY: 1 X DAILY

REACTIONS (1)
  - MALIGNANT NEOPLASM PROGRESSION [None]
